FAERS Safety Report 17498410 (Version 1)
Quarter: 2020Q1

REPORT INFORMATION
  Report Type: Other
  Country: ES (occurrence: ES)
  Receive Date: 20200304
  Receipt Date: 20200304
  Transmission Date: 20200409
  Serious: Yes (Life-Threatening, Hospitalization, Disabling)
  Sender: FDA-Public Use
  Company Number: ES-NOSTRUM LABORATORIES, INC.-2081272

PATIENT
  Age: 52 Year
  Sex: Male
  Weight: 108 kg

DRUGS (3)
  1. MORPHINE SULFATE. [Suspect]
     Active Substance: MORPHINE SULFATE
     Indication: BONE PAIN
     Route: 048
  2. ESCITALOPRAM [Interacting]
     Active Substance: ESCITALOPRAM OXALATE
     Route: 048
  3. LOSARTAN POTASSIUM TABLETS, 25 MG [Concomitant]
     Active Substance: LOSARTAN POTASSIUM
     Route: 048

REACTIONS (6)
  - Respiratory depression [Recovered/Resolved]
  - Accidental overdose [Recovered/Resolved]
  - Tinnitus [Recovered/Resolved]
  - Hypotension [Recovered/Resolved]
  - Deafness bilateral [Recovered/Resolved with Sequelae]
  - Coma [Recovered/Resolved]
